FAERS Safety Report 12941175 (Version 1)
Quarter: 2016Q4

REPORT INFORMATION
  Report Type: Spontaneous
  Country: US (occurrence: US)
  Receive Date: 20161115
  Receipt Date: 20161115
  Transmission Date: 20170207
  Serious: Yes (Hospitalization)
  Sender: FDA-Public Use
  Company Number: None

PATIENT
  Age: 89 Year
  Sex: Male
  Weight: 91.3 kg

DRUGS (13)
  1. NORVASC [Concomitant]
     Active Substance: AMLODIPINE BESYLATE
  2. DULCOLAX NOS [Concomitant]
     Active Substance: BISACODYL OR DOCUSATE SODIUM
  3. P [Concomitant]
  4. GLYBURIDE. [Suspect]
     Active Substance: GLYBURIDE
     Indication: DIABETES MELLITUS
     Dosage: 500MG NIGHTLY PO
     Route: 048
  5. APAP [Concomitant]
     Active Substance: ACETAMINOPHEN
  6. ASA [Concomitant]
     Active Substance: ASPIRIN
  7. HUMULIN NOS [Suspect]
     Active Substance: INSULIN HUMAN
     Indication: DIABETES MELLITUS
     Dosage: 30UNITS Q MORNING SQ
     Route: 058
  8. VITAMIN D [Concomitant]
     Active Substance: CHOLECALCIFEROL
  9. VITAMIN B12 [Concomitant]
     Active Substance: CYANOCOBALAMIN
  10. ALBUEROL [Concomitant]
  11. COREG [Concomitant]
     Active Substance: CARVEDILOL
  12. PRISTIQ EXTENDED-RELEASE [Concomitant]
     Active Substance: DESVENLAFAXINE SUCCINATE
  13. LANOXIN [Concomitant]
     Active Substance: DIGOXIN

REACTIONS (6)
  - Encephalopathy [None]
  - Acute respiratory failure [None]
  - Pneumonia [None]
  - Hypoglycaemia [None]
  - Hypercapnia [None]
  - Chronic obstructive pulmonary disease [None]

NARRATIVE: CASE EVENT DATE: 20151210
